FAERS Safety Report 6956174-1 (Version None)
Quarter: 2010Q3

REPORT INFORMATION
  Report Type: 
  Country: None (occurrence: None)
  Receive Date: 20100830
  Receipt Date: 20100817
  Transmission Date: 20110219
  Serious: Yes (Other)
  Sender: FDA-Public Use
  Company Number: PHHY2010SI54740

PATIENT
  Age: 57 Year
  Sex: Female

DRUGS (14)
  1. ALISKIREN/AMOLODIPINE BESYLATE/HYDROCHLOROTHIAZIDE [Suspect]
     Dosage: 300 MG, UNK
     Dates: start: 20100106
  2. ASPIRIN [Concomitant]
     Dosage: 100 MG , UNK
  3. INSULATARD [Concomitant]
     Dosage: 48 UNITS, UNK
  4. NOVORAPID [Concomitant]
     Dosage: 46 UNITS, UNK
  5. METFORMIN HCL [Concomitant]
     Dosage: 2000 MG , UNK
  6. LEXAURIN [Concomitant]
     Dosage: 1.5 MG, DAILY
  7. HYDROCHLOROTHIAZIDE [Concomitant]
     Dosage: 12.5 MG, UNK
  8. ENAP [Concomitant]
  9. KAMIREN [Concomitant]
     Dosage: 2 MG, UNK
  10. EDEMID [Concomitant]
     Dosage: 10 MG, UNK
  11. NOLPAZA [Concomitant]
     Dosage: 20 MG, UNK
  12. CLOXACILLIN [Concomitant]
     Dosage: 200 MG, UNK
  13. PRIMOTREN [Concomitant]
     Dosage: UNK
     Dates: start: 20100514, end: 20100602
  14. AMLOPIN [Concomitant]
     Dosage: 10 MG

REACTIONS (3)
  - BLOOD GLUCOSE INCREASED [None]
  - GLYCOSYLATED HAEMOGLOBIN INCREASED [None]
  - MICROALBUMINURIA [None]
